FAERS Safety Report 6488030-X (Version None)
Quarter: 2009Q4

REPORT INFORMATION
  Report Type: 
  Country: None (occurrence: None)
  Receive Date: 20091210
  Receipt Date: 20091201
  Transmission Date: 20100525
  Serious: Yes (Other)
  Sender: FDA-Public Use
  Company Number: PHHY2009JP47549

PATIENT
  Sex: Female
  Weight: 36 kg

DRUGS (3)
  1. ZOMETA [Suspect]
     Indication: METASTASES TO BONE
     Dosage: 4 MG DAILY
     Route: 042
     Dates: start: 20060913, end: 20090709
  2. FEMARA [Concomitant]
     Dosage: UNK
     Route: 048
     Dates: start: 20080227
  3. XELODA [Concomitant]

REACTIONS (7)
  - DEBRIDEMENT [None]
  - DENTAL FISTULA [None]
  - DISCOMFORT [None]
  - IMPAIRED HEALING [None]
  - PAIN [None]
  - PURULENT DISCHARGE [None]
  - TOOTH EXTRACTION [None]
